FAERS Safety Report 6901074-6 (Version None)
Quarter: 2010Q3

REPORT INFORMATION
  Report Type: 
  Country: None (occurrence: None)
  Receive Date: 20100803
  Receipt Date: 20100729
  Transmission Date: 20110219
  Serious: Yes (Hospitalization)
  Sender: FDA-Public Use
  Company Number: TH-ROCHE-717929

PATIENT
  Sex: Female

DRUGS (24)
  1. TOCILIZUMAB [Suspect]
     Indication: RHEUMATOID ARTHRITIS
     Dosage: AS PER PROTOCOL FORM REPORTED AS INJECTABLE.
     Route: 042
     Dates: start: 20060831
  2. TOCILIZUMAB [Suspect]
     Route: 042
     Dates: start: 20071120
  3. TOCILIZUMAB [Suspect]
     Route: 042
     Dates: start: 20071220
  4. TOCILIZUMAB [Suspect]
     Route: 042
     Dates: start: 20080117
  5. TOCILIZUMAB [Suspect]
     Route: 042
     Dates: start: 20080214, end: 20080313
  6. TOCILIZUMAB [Suspect]
     Route: 042
     Dates: end: 20100729
  7. TOCILIZUMAB [Suspect]
     Dosage: THE PATIENT WAS PREVIOUSLY ENROLLED IN WA18063.
     Route: 042
  8. METHOTREXATE [Suspect]
     Indication: RHEUMATOID ARTHRITIS
     Dosage: FREQUENCY REPORTED AS QS
     Route: 048
  9. METHOTREXATE [Suspect]
     Route: 048
  10. AZATHIOPRINE [Suspect]
     Indication: RHEUMATOID ARTHRITIS
     Route: 048
  11. AZATHIOPRINE [Suspect]
     Route: 048
  12. PREDNISOLONE [Suspect]
     Indication: RHEUMATOID ARTHRITIS
     Route: 048
  13. PREDNISOLONE [Suspect]
     Route: 048
  14. CHLOROQUINE PHOSPHATE [Concomitant]
     Dosage: FREQUENCY REPORTED AS AD
     Route: 048
  15. LEFLUNOMIDE [Concomitant]
     Route: 048
  16. NAPROXEN [Concomitant]
     Dosage: FREQUENCY REPORTED AS PRN
     Route: 048
  17. TRAMADOL HYDROCHLORIDE [Concomitant]
     Dosage: FREQUENCY REPORTED AS PRN
     Route: 048
  18. FOLIC ACID [Concomitant]
     Route: 048
  19. SIMVASTATIN [Concomitant]
     Route: 048
  20. HYDROCHLOROTHIAZIDE [Concomitant]
     Route: 048
  21. CALCIUM CARBONATE [Concomitant]
     Route: 048
  22. AMLODIPINE [Concomitant]
     Route: 048
  23. FERROUS SULFATE [Concomitant]
     Route: 048
  24. OMEPRAZOLE [Concomitant]
     Route: 048

REACTIONS (1)
  - PULMONARY MASS [None]
